FAERS Safety Report 7411646-0 (Version None)
Quarter: 2011Q2

REPORT INFORMATION
  Report Type: 
  Country: None (occurrence: None)
  Receive Date: 20110413
  Receipt Date: 20101019
  Transmission Date: 20111010
  Serious: Yes (Other)
  Sender: FDA-Public Use
  Company Number: US-BRISTOL-MYERS SQUIBB COMPANY-15325459

PATIENT
  Age: 69 Year
  Sex: Male

DRUGS (3)
  1. ERBITUX [Suspect]
     Indication: COLON CANCER METASTATIC
     Dosage: 1 DF:350-400MG(OF 848MG LOADING DOSE),8 OF THE 100MG/50MG VIALS
     Route: 042
     Dates: start: 20101008
  2. ASPIRIN [Concomitant]
  3. RAMIPRIL [Concomitant]

REACTIONS (3)
  - CHILLS [None]
  - FLUSHING [None]
  - BLOOD PRESSURE INCREASED [None]
